FAERS Safety Report 4538654-1 (Version None)
Quarter: 2004Q4

REPORT INFORMATION
  Report Type: 
  Country: None (occurrence: None)
  Receive Date: 20041222
  Receipt Date: 20041117
  Transmission Date: 20050328
  Serious: Yes (Other)
  Sender: FDA-Public Use
  Company Number: WAES 0411PHL00025

PATIENT

DRUGS (1)
  1. PRIMAXIN [Suspect]
     Indication: ABDOMINAL INFECTION
     Dosage: 500 MG/Q6H
     Route: 042

REACTIONS (3)
  - DUODENAL ULCER PERFORATION [None]
  - PNEUMONIA [None]
  - SEPSIS [None]
